FAERS Safety Report 12769219 (Version 1)
Quarter: 2016Q3

REPORT INFORMATION
  Report Type: Report from Study
  Country: CA (occurrence: CA)
  Receive Date: 20160921
  Receipt Date: 20160921
  Transmission Date: 20161109
  Serious: Yes (Other)
  Sender: FDA-Public Use
  Company Number: CA-AMGEN-CANSL2016126344

PATIENT
  Age: 28 Year
  Sex: Female

DRUGS (7)
  1. ENBREL [Suspect]
     Active Substance: ETANERCEPT
     Dosage: 25 MG, 2 TIMES/WK
     Route: 065
     Dates: start: 2002, end: 2003
  2. METHOTREXATE. [Suspect]
     Active Substance: METHOTREXATE
     Indication: PRODUCT USED FOR UNKNOWN INDICATION
     Dosage: UNK
     Route: 065
     Dates: start: 2002
  3. FOLIC ACID. [Concomitant]
     Active Substance: FOLIC ACID
     Dosage: 1 MG, QD
  4. HUMIRA [Suspect]
     Active Substance: ADALIMUMAB
     Indication: PRODUCT USED FOR UNKNOWN INDICATION
     Dosage: UNK
     Route: 065
     Dates: start: 2003
  5. ENBREL [Suspect]
     Active Substance: ETANERCEPT
     Dosage: UNK
     Route: 065
     Dates: start: 2004
  6. PREDNISONE. [Concomitant]
     Active Substance: PREDNISONE
     Dosage: UNK
     Dates: start: 2004
  7. ENBREL [Suspect]
     Active Substance: ETANERCEPT
     Indication: RHEUMATOID ARTHRITIS
     Dosage: 50 MG, 2 TIMES/WK
     Route: 065
     Dates: start: 20020101, end: 2002

REACTIONS (30)
  - Nephrolithiasis [Unknown]
  - Nausea [Unknown]
  - Upper respiratory tract infection [Unknown]
  - Paraesthesia [Unknown]
  - Joint range of motion decreased [Unknown]
  - Pain in extremity [Unknown]
  - Malaise [Unknown]
  - Joint warmth [Unknown]
  - Arthralgia [Unknown]
  - Joint stiffness [Unknown]
  - Osteopenia [Unknown]
  - Feeling abnormal [Unknown]
  - Injection site swelling [Recovered/Resolved]
  - Neuropathy peripheral [Unknown]
  - Pain [Unknown]
  - Hypoaesthesia [Unknown]
  - Chest discomfort [Unknown]
  - Synovial disorder [Unknown]
  - Drug intolerance [Unknown]
  - Injection site erythema [Recovered/Resolved]
  - Fatigue [Unknown]
  - Joint swelling [Unknown]
  - Drug effect incomplete [Unknown]
  - Weight increased [Unknown]
  - Nasopharyngitis [Unknown]
  - Sinusitis [Unknown]
  - Off label use [Unknown]
  - Arthropathy [Unknown]
  - Irritability [Unknown]
  - Foot fracture [Unknown]

NARRATIVE: CASE EVENT DATE: 2002
